FAERS Safety Report 23467514 (Version 3)
Quarter: 2025Q1

REPORT INFORMATION
  Report Type: Spontaneous
  Country: US (occurrence: US)
  Receive Date: 20240201
  Receipt Date: 20250109
  Transmission Date: 20250408
  Serious: Yes (Other)
  Sender: INCYTE
  Company Number: US-INCYTE CORPORATION-2024IN000465

PATIENT

DRUGS (1)
  1. OPZELURA [Suspect]
     Active Substance: RUXOLITINIB PHOSPHATE
     Indication: Vitiligo
     Dosage: UNK, BID
     Route: 061
     Dates: start: 2023

REACTIONS (5)
  - Dementia [Unknown]
  - Fall [Unknown]
  - Drug ineffective [Unknown]
  - Product dose omission in error [Unknown]
  - Off label use [Unknown]
